FAERS Safety Report 14588788 (Version 9)
Quarter: 2020Q1

REPORT INFORMATION
  Report Type: Spontaneous
  Country: US (occurrence: US)
  Receive Date: 20180301
  Receipt Date: 20200225
  Transmission Date: 20200409
  Serious: Yes (Hospitalization, Other)
  Sender: FDA-Public Use
  Company Number: US-ACTELION-A-NJ2018-168287

PATIENT
  Age: 55 Year
  Sex: Female
  Weight: 95.24 kg

DRUGS (2)
  1. REMODULIN [Suspect]
     Active Substance: TREPROSTINIL
     Indication: PRODUCT USED FOR UNKNOWN INDICATION
     Dosage: 91 NG/KG, PER MIN
     Route: 058
  2. OPSUMIT [Suspect]
     Active Substance: MACITENTAN
     Indication: PULMONARY ARTERIAL HYPERTENSION
     Dosage: 10 MG, QD
     Route: 048

REACTIONS (19)
  - Abdominal distension [Unknown]
  - Renal impairment [Unknown]
  - Hypotension [Unknown]
  - Facial pain [Unknown]
  - Fluid retention [Unknown]
  - Septic shock [Unknown]
  - Unresponsive to stimuli [Unknown]
  - Dialysis [Unknown]
  - Dyspepsia [Recovering/Resolving]
  - Nausea [Recovering/Resolving]
  - Flushing [Recovering/Resolving]
  - Retching [Recovering/Resolving]
  - Dizziness [Unknown]
  - Influenza [Recovering/Resolving]
  - Diarrhoea [Recovering/Resolving]
  - Fluid overload [Unknown]
  - Device dislocation [Recovering/Resolving]
  - Vomiting [Recovering/Resolving]
  - Disorientation [Unknown]

NARRATIVE: CASE EVENT DATE: 20180212
